FAERS Safety Report 6145885-6 (Version None)
Quarter: 2009Q2

REPORT INFORMATION
  Report Type: 
  Country: None (occurrence: None)
  Receive Date: 20090407
  Receipt Date: 20090403
  Transmission Date: 20091009
  Serious: Yes (Death, Other)
  Sender: FDA-Public Use
  Company Number: PHHY2009JP11067

PATIENT
  Age: 61 Year
  Sex: Female

DRUGS (7)
  1. CYCLOSPORINE [Suspect]
     Indication: CORD BLOOD TRANSPLANT THERAPY
     Dosage: UNK
  2. CYCLOSPORINE [Suspect]
     Indication: PROPHYLAXIS AGAINST GRAFT VERSUS HOST DISEASE
  3. MYCOPHENOLATE MOFETIL [Suspect]
     Indication: CORD BLOOD TRANSPLANT THERAPY
     Dosage: UNK
     Dates: start: 20080601
  4. MYCOPHENOLATE MOFETIL [Suspect]
     Indication: PROPHYLAXIS AGAINST GRAFT VERSUS HOST DISEASE
  5. FLUDARABINE PHOSPHATE [Concomitant]
     Indication: CORD BLOOD TRANSPLANT THERAPY
     Dosage: 30MG/M^2
  6. CYCLOPHOSPHAMIDE [Concomitant]
     Indication: CORD BLOOD TRANSPLANT THERAPY
     Dosage: 25 MG/KG
  7. IRRADIATION [Concomitant]
     Indication: CORD BLOOD TRANSPLANT THERAPY
     Dosage: 2 GY

REACTIONS (11)
  - ACUTE MYELOID LEUKAEMIA [None]
  - COMPLICATIONS OF BONE MARROW TRANSPLANT [None]
  - CYTOMEGALOVIRUS ANTIGEN POSITIVE [None]
  - CYTOMEGALOVIRUS GASTRITIS [None]
  - EYELID OEDEMA [None]
  - HYPOXIA [None]
  - LEUKAEMIC INFILTRATION PULMONARY [None]
  - LYMPHOCYTE MORPHOLOGY ABNORMAL [None]
  - MECHANICAL VENTILATION [None]
  - PNEUMONIA CYTOMEGALOVIRAL [None]
  - PYREXIA [None]
